FAERS Safety Report 8383236 (Version 4)
Quarter: 2014Q1

REPORT INFORMATION
  Report Type: Spontaneous
  Country: US (occurrence: US)
  Receive Date: 20120130
  Receipt Date: 20140224
  Transmission Date: 20141002
  Serious: Yes (Other)
  Sender: FDA-Public Use
  Company Number: US-PFIZER INC-2012019470

PATIENT
  Age: 70 Year
  Sex: Male

DRUGS (17)
  1. CELEBREX [Suspect]
     Dosage: 200 MG, 1X/DAY
  2. PRISTIQ [Suspect]
     Dosage: 50 MG, 1X/DAY
  3. XELJANZ [Suspect]
     Dosage: 5 MG, 2X/DAY
  4. FOLIC ACID [Concomitant]
     Dosage: 1 MG, 1X/DAY
     Route: 048
  5. ALBUTEROL [Concomitant]
     Dosage: UNK
  6. AZULFIDINE [Concomitant]
     Dosage: 100 MG, 2X/DAY
  7. GLUCOSAMINE [Concomitant]
     Dosage: 500 MG, 1X/DAY
  8. HUMIRA [Concomitant]
     Dosage: 40 MG/0.8ML MG, EVERY TWO WEEKLY
     Route: 058
  9. LATANOPROST [Concomitant]
     Dosage: 1 GTT, 1X/DAY
  10. METHYLSULFONYLMETHANE [Concomitant]
     Dosage: 500 MG, 1X/DAY
  11. METAMUCIL ^PROCTER + GAMBLE^ [Concomitant]
     Dosage: 1 TESP, 1X/DAY
  12. OMEPRAZOLE [Concomitant]
     Dosage: 40 MG, 1X/DAY
     Route: 048
  13. PRAVASTATIN SODIUM [Concomitant]
     Dosage: 40 MG, UNK
  14. PRADAXA [Concomitant]
     Dosage: 150 MG, 2X/DAY
  15. SULFASALAZINE [Concomitant]
     Dosage: 500 MG, 2X/DAY
     Route: 048
  16. VITAMIN D [Concomitant]
     Dosage: 80 IU, 1X/DAY
  17. ZYRTEC [Concomitant]
     Dosage: 10 MG, 1X/DAY

REACTIONS (7)
  - Intervertebral disc degeneration [Unknown]
  - Reiter^s syndrome [Recovering/Resolving]
  - Arthropathy [Unknown]
  - Osteoarthritis [Not Recovered/Not Resolved]
  - Lumbar spinal stenosis [Unknown]
  - Tendon disorder [Unknown]
  - Bursa disorder [Unknown]
